FAERS Safety Report 9830551 (Version 1)
Quarter: 2014Q1

REPORT INFORMATION
  Report Type: Spontaneous
  Country: US (occurrence: US)
  Receive Date: 20140120
  Receipt Date: 20140120
  Transmission Date: 20141002
  Serious: Yes (Death, Hospitalization)
  Sender: FDA-Public Use
  Company Number: US-BAYER-2014-005086

PATIENT
  Age: 91 Year
  Sex: Male
  Weight: 52 kg

DRUGS (2)
  1. ALEVE CAPLET [Suspect]
     Indication: MYALGIA
     Dosage: UNK UNK, PRN
     Route: 048
  2. ALEVE CAPLET [Suspect]
     Indication: MUSCULOSKELETAL PAIN
     Dosage: UNK
     Route: 048
     Dates: start: 201112, end: 20120305

REACTIONS (2)
  - Gastrointestinal haemorrhage [None]
  - Parkinson^s disease [Fatal]
